FAERS Safety Report 8368934-3 (Version None)
Quarter: 2012Q2

REPORT INFORMATION
  Report Type: 
  Country: None (occurrence: None)
  Receive Date: 20120516
  Receipt Date: 20120516
  Transmission Date: 20120825
  Serious: Yes (Other)
  Sender: FDA-Public Use
  Company Number: None

PATIENT
  Sex: Male

DRUGS (1)
  1. SUTENT [Suspect]
     Dosage: 12.5MG DAILY PO , 25MG DAILY PO
     Route: 048
     Dates: start: 20120308, end: 20120407

REACTIONS (1)
  - RENAL IMPAIRMENT [None]
